FAERS Safety Report 12307111 (Version 2)
Quarter: 2017Q2

REPORT INFORMATION
  Report Type: Spontaneous
  Country: US (occurrence: US)
  Receive Date: 20160426
  Receipt Date: 20170426
  Transmission Date: 20170830
  Serious: No
  Sender: FDA-Public Use
  Company Number: US-ALKERMES INC.-ALK-2016-000042

PATIENT
  Age: 32 Year
  Sex: Male
  Weight: 84.35 kg

DRUGS (4)
  1. WELLBUTRIN [Concomitant]
     Active Substance: BUPROPION HYDROCHLORIDE
     Indication: DEPRESSION
     Dosage: UNK
  2. VIVITROL [Suspect]
     Active Substance: NALTREXONE
     Indication: ALCOHOLISM
     Dosage: 380 MG, QMO
     Route: 030
     Dates: start: 201511
  3. VIVITROL [Suspect]
     Active Substance: NALTREXONE
     Indication: DRUG USE DISORDER
  4. CLONIDINE. [Concomitant]
     Active Substance: CLONIDINE
     Indication: HYPERTENSION
     Dosage: UNK

REACTIONS (11)
  - Dependence [Recovered/Resolved]
  - Surgery [Unknown]
  - Drug screen positive [Recovered/Resolved]
  - Rhinorrhoea [Unknown]
  - Lethargy [Unknown]
  - Alcohol use [Unknown]
  - Drug use disorder [Unknown]
  - Euphoric mood [Unknown]
  - Drug use disorder [Recovered/Resolved]
  - Yawning [Unknown]
  - Withdrawal syndrome [Unknown]

NARRATIVE: CASE EVENT DATE: 2015
